FAERS Safety Report 18780257 (Version 1)
Quarter: 2021Q1

REPORT INFORMATION
  Report Type: Spontaneous
  Country: US (occurrence: US)
  Receive Date: 20210125
  Receipt Date: 20210125
  Transmission Date: 20210419
  Serious: Yes (Other)
  Sender: FDA-Public Use
  Company Number: US-SA-2021SA015210

PATIENT
  Age: 55 Year
  Sex: Female

DRUGS (1)
  1. ZANTAC [Suspect]
     Active Substance: RANITIDINE HYDROCHLORIDE
     Indication: GASTROOESOPHAGEAL REFLUX DISEASE
     Dosage: 150 MG, QD
     Dates: start: 199001, end: 201809

REACTIONS (3)
  - Breast cancer stage I [Unknown]
  - Lung carcinoma cell type unspecified stage III [Not Recovered/Not Resolved]
  - Hepatic cancer stage II [Not Recovered/Not Resolved]

NARRATIVE: CASE EVENT DATE: 20090101
